FAERS Safety Report 8899642 (Version 1)
Quarter: 2012Q4

REPORT INFORMATION
  Report Type: 
  Country: US (occurrence: US)
  Receive Date: 20121108
  Receipt Date: 20121108
  Transmission Date: 20130627
  Serious: No
  Sender: FDA-Public Use
  Company Number: US-AMGEN-USASP2012026376

PATIENT
  Age: 53 Year
  Sex: Female

DRUGS (1)
  1. ENBREL [Suspect]
     Indication: PSORIATIC ARTHROPATHY
     Dosage: 50 mg, qwk
     Dates: start: 20080320, end: 201204

REACTIONS (3)
  - Helicobacter test positive [Not Recovered/Not Resolved]
  - Arthritis [Not Recovered/Not Resolved]
  - Gastric ulcer [Not Recovered/Not Resolved]
